FAERS Safety Report 18570546 (Version 1)
Quarter: 2020Q4

REPORT INFORMATION
  Report Type: Spontaneous
  Country: CN (occurrence: CN)
  Receive Date: 20201202
  Receipt Date: 20201202
  Transmission Date: 20210114
  Serious: Yes (Hospitalization)
  Sender: FDA-Public Use
  Company Number: CN-ANIPHARMA-2020-CN-000354

PATIENT
  Age: 82 Year
  Sex: Male
  Weight: 60 kg

DRUGS (8)
  1. CASODEX [Suspect]
     Active Substance: BICALUTAMIDE
     Indication: PROSTATE CANCER
     Dosage: 50 MG QD
     Route: 048
     Dates: start: 20200526, end: 20200625
  2. TAMSULOSIN HYDROCHLORIDE. [Suspect]
     Active Substance: TAMSULOSIN HYDROCHLORIDE
     Dosage: .2 MG QD
     Route: 048
     Dates: start: 20200526, end: 20201117
  3. FEBUXOSTAT. [Concomitant]
     Active Substance: FEBUXOSTAT
     Dosage: 40 MG QD
     Route: 048
     Dates: start: 20200525, end: 20201117
  4. METOPROLOL SUCCINATE. [Concomitant]
     Active Substance: METOPROLOL SUCCINATE
     Dosage: 23.75 MG QD
     Route: 048
     Dates: start: 20200525, end: 20201117
  5. ISOSORBIDE MONONITRATE. [Concomitant]
     Active Substance: ISOSORBIDE MONONITRATE
     Dosage: 30 MG QD
     Route: 048
     Dates: start: 20200525, end: 20201117
  6. ACARBOSE. [Concomitant]
     Active Substance: ACARBOSE
     Dosage: 100 MG TID
     Route: 048
     Dates: start: 20200525, end: 20201117
  7. DANSHEN [Concomitant]
     Active Substance: HERBALS
     Dosage: 10 DF TID
     Dates: start: 20200525, end: 20201117
  8. GOSERELIN ACETATE [Suspect]
     Active Substance: GOSERELIN ACETATE
     Route: 058
     Dates: start: 20200526, end: 20200625

REACTIONS (6)
  - Chest discomfort [Recovering/Resolving]
  - Dry skin [Recovering/Resolving]
  - Pruritus [Recovering/Resolving]
  - Dizziness [Not Recovered/Not Resolved]
  - Decreased appetite [Recovering/Resolving]
  - Palpitations [Recovering/Resolving]

NARRATIVE: CASE EVENT DATE: 20200625
